FAERS Safety Report 9924300 (Version 1)
Quarter: 2014Q1

REPORT INFORMATION
  Report Type: Spontaneous
  Country: HK (occurrence: HK)
  Receive Date: 20140226
  Receipt Date: 20140226
  Transmission Date: 20141002
  Serious: Yes (Other)
  Sender: FDA-Public Use
  Company Number: HK-ROCHE-1353709

PATIENT
  Sex: 0
  Weight: 49.94 kg

DRUGS (1)
  1. TAMIFLU [Suspect]
     Indication: PRODUCT USED FOR UNKNOWN INDICATION
     Dosage: EACH TIME 1 CAPSULE
     Route: 048

REACTIONS (3)
  - Overdose [Unknown]
  - Nausea [Unknown]
  - Gastrointestinal disorder [Unknown]
